FAERS Safety Report 9310927 (Version 1)
Quarter: 2013Q1

REPORT INFORMATION
  Report Type: Spontaneous
  Country: US (occurrence: None)
  Receive Date: 20130207
  Receipt Date: 20130207
  Transmission Date: 20140127
  Serious: Yes (Hospitalization)
  Sender: FDA-Public Use
  Company Number: USA/USA/13/0027339

PATIENT
  Age: 63 Year
  Sex: Female
  Weight: 88.45 kg

DRUGS (6)
  1. LANSOPRAZOLE [Suspect]
     Indication: PRODUCT USED FOR UNKNOWN INDICATION
     Dates: start: 20121224
  2. PREMARIN (ESTROGENS CONJUGATED) [Concomitant]
  3. SYNTHROID (LEVOTHYROXINE SODIUM) [Concomitant]
  4. VITAMIN E (TOCOPHEROL) [Concomitant]
  5. NADOLOL (NADOLOL) [Concomitant]
  6. XIFAXAN (RIFAXIMIN) [Concomitant]

REACTIONS (6)
  - Dizziness [None]
  - Memory impairment [None]
  - Tremor [None]
  - Ammonia abnormal [None]
  - Gait disturbance [None]
  - Renal failure [None]
